FAERS Safety Report 6210974-4 (Version None)
Quarter: 2009Q2

REPORT INFORMATION
  Report Type: 
  Country: None (occurrence: None)
  Receive Date: 20090602
  Receipt Date: 20090522
  Transmission Date: 20091009
  Serious: Yes (Hospitalization, Other)
  Sender: FDA-Public Use
  Company Number: US-CELGENEUS-163-50794-09051618

PATIENT
  Sex: Male
  Weight: 92.162 kg

DRUGS (15)
  1. VIDAZA [Suspect]
     Indication: PROSTATE CANCER METASTATIC
     Route: 051
     Dates: start: 20090504, end: 20090518
  2. VIDAZA [Suspect]
     Route: 051
     Dates: start: 20090323, end: 20090406
  3. DOCETAXEL [Suspect]
     Indication: PROSTATE CANCER METASTATIC
     Route: 051
     Dates: start: 20090504, end: 20090518
  4. DOCETAXEL [Suspect]
     Route: 051
     Dates: start: 20090323, end: 20090406
  5. PREDNISONE [Suspect]
     Indication: PROSTATE CANCER METASTATIC
     Route: 065
  6. SIMVASTATIN [Concomitant]
     Indication: DRUG USE FOR UNKNOWN INDICATION
     Route: 048
  7. GEMFIBROZIL [Concomitant]
     Indication: DRUG USE FOR UNKNOWN INDICATION
     Route: 048
  8. XANAX [Concomitant]
     Indication: DRUG USE FOR UNKNOWN INDICATION
     Route: 048
  9. LEXAPRO [Concomitant]
     Indication: DRUG USE FOR UNKNOWN INDICATION
     Route: 048
  10. CALCIUM WITH VITAMIN D [Concomitant]
     Indication: DRUG USE FOR UNKNOWN INDICATION
     Route: 048
  11. COQ10 [Concomitant]
     Indication: DRUG USE FOR UNKNOWN INDICATION
     Route: 048
  12. M.V.I. [Concomitant]
     Indication: DRUG USE FOR UNKNOWN INDICATION
     Route: 048
  13. TYLENOL (CAPLET) [Concomitant]
     Indication: PAIN
     Route: 048
  14. FENTANYL-100 [Concomitant]
     Indication: DRUG USE FOR UNKNOWN INDICATION
     Route: 061
  15. PERCOCET [Concomitant]
     Indication: PAIN
     Route: 048

REACTIONS (2)
  - CEREBROVASCULAR ACCIDENT [None]
  - VOMITING [None]
